FAERS Safety Report 11007748 (Version 2)
Quarter: 2015Q2

REPORT INFORMATION
  Report Type: Spontaneous
  Country: US (occurrence: US)
  Receive Date: 20150409
  Receipt Date: 20150525
  Transmission Date: 20150821
  Serious: No
  Sender: FDA-Public Use
  Company Number: US-JNJFOC-20090806724

PATIENT
  Age: 35 Year
  Sex: Male
  Weight: 77.57 kg

DRUGS (16)
  1. REMICADE [Suspect]
     Active Substance: INFLIXIMAB
     Indication: COLITIS ULCERATIVE
     Dosage: 10MG/ KG, APPROXIMATE TOTAL NUMBER OF INFUSIONS RECEIVED IS 38
     Route: 042
     Dates: start: 20081028
  2. GLYCOPYRROLATE. [Concomitant]
     Active Substance: GLYCOPYRROLATE
  3. CLARITIN [Concomitant]
     Active Substance: LORATADINE
     Indication: PREMEDICATION
     Dosage: 09:30 A.M. 10/01/2013
     Route: 048
  4. TAGAMET [Concomitant]
     Active Substance: CIMETIDINE
     Indication: PREMEDICATION
     Dosage: 08:00 A.M.
     Route: 048
     Dates: start: 20090930, end: 20091001
  5. FOLATE [Concomitant]
     Active Substance: FOLATE SODIUM
  6. SOLU-MEDROL [Concomitant]
     Active Substance: METHYLPREDNISOLONE SODIUM SUCCINATE
     Indication: PREMEDICATION
     Dosage: 15 MINUTE PRIOR TO INFUSION
     Route: 042
  7. LIALDA [Concomitant]
     Active Substance: MESALAMINE
     Indication: COLITIS ULCERATIVE
     Dosage: 4 PER DAY
     Route: 065
  8. FERROUS SULFATE [Concomitant]
     Active Substance: FERROUS SULFATE\FERROUS SULFATE, DRIED
     Indication: BLOOD IRON DECREASED
     Route: 065
  9. MESALAMINE. [Concomitant]
     Active Substance: MESALAMINE
  10. ROBINUL [Concomitant]
     Active Substance: GLYCOPYRROLATE
     Indication: MUSCLE SPASMS
     Route: 065
  11. REMICADE [Suspect]
     Active Substance: INFLIXIMAB
     Indication: COLITIS ULCERATIVE
     Route: 042
     Dates: start: 20090814
  12. PREDNISONE. [Concomitant]
     Active Substance: PREDNISONE
     Indication: PREMEDICATION
     Dosage: DAY BEFORE AND DAY OF INFUSION
     Route: 048
     Dates: start: 20090930, end: 20091001
  13. LIALDA [Concomitant]
     Active Substance: MESALAMINE
  14. APRISO [Concomitant]
     Active Substance: MESALAMINE
     Route: 065
     Dates: start: 20090626, end: 20130507
  15. ROWASA [Concomitant]
     Active Substance: MESALAMINE
     Indication: ENEMA ADMINISTRATION
  16. LOMOTIL [Concomitant]
     Active Substance: ATROPINE SULFATE\DIPHENOXYLATE HYDROCHLORIDE

REACTIONS (6)
  - Pain in jaw [Recovered/Resolved]
  - Back pain [Recovered/Resolved]
  - Infusion related reaction [Recovered/Resolved]
  - Muscle spasms [Recovered/Resolved]
  - Arthralgia [Recovered/Resolved]
  - Myalgia [Recovered/Resolved]

NARRATIVE: CASE EVENT DATE: 20090626
